FAERS Safety Report 10020484 (Version 4)
Quarter: 2015Q2

REPORT INFORMATION
  Report Type: Spontaneous
  Country: US (occurrence: US)
  Receive Date: 20140319
  Receipt Date: 20150613
  Transmission Date: 20150821
  Serious: No
  Sender: FDA-Public Use
  Company Number: US-BIOGENIDEC-2014BI022854

PATIENT
  Age: 50 Year
  Sex: Female

DRUGS (2)
  1. TECFIDERA [Suspect]
     Active Substance: DIMETHYL FUMARATE
     Indication: MULTIPLE SCLEROSIS
     Route: 048
     Dates: start: 20140101, end: 20140702
  2. TECFIDERA [Suspect]
     Active Substance: DIMETHYL FUMARATE
     Indication: MULTIPLE SCLEROSIS
     Dates: start: 20140124

REACTIONS (10)
  - Hot flush [Unknown]
  - Pruritus generalised [Recovered/Resolved]
  - Urinary tract infection [Unknown]
  - Chromaturia [Unknown]
  - Urine odour abnormal [Not Recovered/Not Resolved]
  - Flushing [Recovered/Resolved]
  - Hyperphagia [Unknown]
  - Inflammation [Unknown]
  - Pruritus [Unknown]
  - Neuralgia [Unknown]

NARRATIVE: CASE EVENT DATE: 20140124
